FAERS Safety Report 8818815 (Version 2)
Quarter: 2012Q4

REPORT INFORMATION
  Report Type: 
  Country: IT (occurrence: IT)
  Receive Date: 20121001
  Receipt Date: 20121009
  Transmission Date: 20130627
  Serious: Yes (Hospitalization)
  Sender: FDA-Public Use
  Company Number: PHHY2012IT084262

PATIENT
  Age: 80 Year
  Sex: Female

DRUGS (6)
  1. TEGRETOL [Suspect]
     Dosage: 1200 mg, daily
     Route: 048
     Dates: start: 19720809
  2. LAMOTRIGINE [Concomitant]
     Route: 048
  3. GARDENALE [Concomitant]
     Dosage: 100 mg, UNK
     Route: 048
  4. VALSARTAN/HYDROCHLOORTHIAZIDE [Concomitant]
     Dosage: 160 mg, UNK
     Route: 048
  5. CARDIRENE [Concomitant]
     Dosage: 160 mg, UNK
     Route: 048
  6. SODIUM CHLORIDE [Concomitant]
     Indication: HYPONATRAEMIA

REACTIONS (10)
  - Gastrointestinal disorder [Recovering/Resolving]
  - Anaemia [Recovering/Resolving]
  - C-reactive protein increased [Recovering/Resolving]
  - Hyponatraemia [Recovering/Resolving]
  - Vomiting [Recovering/Resolving]
  - Blood alkaline phosphatase increased [Recovering/Resolving]
  - Blood glucose increased [Recovering/Resolving]
  - White blood cell count decreased [Recovering/Resolving]
  - Haemoglobin decreased [Recovering/Resolving]
  - Dehydration [Recovering/Resolving]
